FAERS Safety Report 8983875 (Version 1)
Quarter: 2012Q4

REPORT INFORMATION
  Report Type: 
  Country: GB (occurrence: GB)
  Receive Date: 20121224
  Receipt Date: 20121224
  Transmission Date: 20130627
  Serious: Yes (Other)
  Sender: FDA-Public Use
  Company Number: GB-ROCHE-1173199

PATIENT
  Sex: Male
  Weight: 113.5 kg

DRUGS (3)
  1. XOLAIR [Suspect]
     Indication: PRODUCT USED FOR UNKNOWN INDICATION
     Route: 058
     Dates: start: 20120813, end: 20121105
  2. SYMBICORT [Concomitant]
     Route: 065
     Dates: start: 200907
  3. SALBUTAMOL [Concomitant]
     Route: 065
     Dates: start: 2009

REACTIONS (4)
  - Asthma [Recovering/Resolving]
  - Spirometry abnormal [Unknown]
  - Quality of life decreased [Unknown]
  - Drug ineffective [Unknown]
